FAERS Safety Report 7527759-9 (Version None)
Quarter: 2011Q2

REPORT INFORMATION
  Report Type: 
  Country: None (occurrence: None)
  Receive Date: 20110512
  Receipt Date: 20110128
  Transmission Date: 20111010
  Serious: No
  Sender: FDA-Public Use
  Company Number: 1000018553

PATIENT
  Age: 58 Year
  Sex: Female

DRUGS (8)
  1. EVISTA (RALOXIFENE) (RALOXIFENE) [Concomitant]
  2. CORTISONE (CORTISONE) (CORTISONE) [Concomitant]
  3. KLONOPIN (CLONAZEPAM) (CLONAZEPAM) [Concomitant]
  4. LYRICA [Concomitant]
  5. SAVELLA [Suspect]
     Indication: FIBROMYALGIA
     Dosage: SEE IMAGE
     Route: 048
     Dates: start: 20110104, end: 20110105
  6. SAVELLA [Suspect]
     Indication: FIBROMYALGIA
     Dosage: SEE IMAGE
     Route: 048
     Dates: start: 20110106, end: 20110109
  7. SAVELLA [Suspect]
     Indication: FIBROMYALGIA
     Dosage: SEE IMAGE
     Route: 048
     Dates: start: 20110103, end: 20110103
  8. SAVELLA [Suspect]
     Indication: FIBROMYALGIA
     Dosage: SEE IMAGE
     Route: 048
     Dates: start: 20110110

REACTIONS (6)
  - PYREXIA [None]
  - AGITATION [None]
  - IRRITABILITY [None]
  - ANXIETY [None]
  - CONFUSIONAL STATE [None]
  - INSOMNIA [None]
